FAERS Safety Report 23110457 (Version 2)
Quarter: 2023Q4

REPORT INFORMATION
  Report Type: Spontaneous
  Country: CA (occurrence: CA)
  Receive Date: 20231026
  Receipt Date: 20231107
  Transmission Date: 20240110
  Serious: Yes (Death, Other)
  Sender: FDA-Public Use
  Company Number: CA-TEVA-2023-CA-2937307

PATIENT
  Age: 42 Year
  Sex: Male

DRUGS (15)
  1. RASAGILINE [Suspect]
     Active Substance: RASAGILINE
     Indication: Parkinson^s disease
     Dosage: 1 MILLIGRAM DAILY;
     Route: 065
  2. RASAGILINE [Suspect]
     Active Substance: RASAGILINE
     Indication: Dopamine agonist withdrawal syndrome
  3. VENLAFAXINE [Suspect]
     Active Substance: VENLAFAXINE HYDROCHLORIDE
     Indication: Anxiety
     Dosage: INITIAL DOSE UNKNOWN
     Route: 065
  4. VENLAFAXINE [Suspect]
     Active Substance: VENLAFAXINE HYDROCHLORIDE
     Dosage: GRADUALLY TITRATED DOSE AT 150MG DAILY OVER THE PERIOD OF FEW MONTHS
     Route: 065
  5. BUPROPION [Suspect]
     Active Substance: BUPROPION
     Indication: Dopamine agonist withdrawal syndrome
     Dosage: 300 MILLIGRAM DAILY;
     Route: 065
  6. ROTIGOTINE [Suspect]
     Active Substance: ROTIGOTINE
     Indication: Parkinson^s disease
     Dosage: 2 MILLIGRAM DAILY;
     Route: 065
  7. ROTIGOTINE [Suspect]
     Active Substance: ROTIGOTINE
     Dosage: 4 MILLIGRAM DAILY; INCREASED DOSE
     Route: 065
  8. ROTIGOTINE [Suspect]
     Active Substance: ROTIGOTINE
     Dosage: 8 MILLIGRAM DAILY; INCREASED DOSE
     Route: 065
  9. ROTIGOTINE [Suspect]
     Active Substance: ROTIGOTINE
     Dosage: 6 MILLIGRAM DAILY; DECREASED DOSE
     Route: 065
  10. ROTIGOTINE [Suspect]
     Active Substance: ROTIGOTINE
     Dosage: 4 MILLIGRAM DAILY; RECEIVED DECREASED DOSE AFTER 4 MONTHS
     Route: 065
  11. ROTIGOTINE [Suspect]
     Active Substance: ROTIGOTINE
     Dosage: 2 MILLIGRAM DAILY; RECEIVED FURTHER DECREASED DOSE AFTER 8 MONTHS AND CONTINUED
     Route: 065
  12. CARBIDOPA\LEVODOPA [Suspect]
     Active Substance: CARBIDOPA\LEVODOPA
     Indication: Parkinson^s disease
     Dosage: INITIAL DOSE UNKNOWN
     Route: 065
  13. CARBIDOPA\LEVODOPA [Suspect]
     Active Substance: CARBIDOPA\LEVODOPA
     Dosage: RECEIVED INCREASED DOSE TO CARBIDOPA 25 MG/LEVODOPA 100MG THREE TIMES A DAY
     Route: 065
  14. CARBIDOPA\LEVODOPA [Suspect]
     Active Substance: CARBIDOPA\LEVODOPA
     Dosage: RECEIVED INCREASED DOSE TO CARBIDOPA 25 MG/LEVODOPA100MG 1.5PILL
     Route: 065
  15. VORTIOXETINE [Suspect]
     Active Substance: VORTIOXETINE
     Indication: Dopamine agonist withdrawal syndrome
     Dosage: RECEIVED UP TO A DOSE OF 10MG
     Route: 065

REACTIONS (6)
  - Dopamine agonist withdrawal syndrome [Fatal]
  - Suicidal ideation [Fatal]
  - Completed suicide [Fatal]
  - Therapeutic product ineffective [Fatal]
  - Impulse-control disorder [Recovering/Resolving]
  - Erectile dysfunction [Unknown]
